FAERS Safety Report 9057665 (Version 1)
Quarter: 2013Q1

REPORT INFORMATION
  Report Type: Spontaneous
  Country: CA (occurrence: CA)
  Receive Date: 20130204
  Receipt Date: 20130204
  Transmission Date: 20140127
  Serious: Yes (Other)
  Sender: FDA-Public Use
  Company Number: PHHY2013CA008765

PATIENT
  Age: 55 Year
  Sex: Female

DRUGS (4)
  1. ZOLEDRONIC ACID [Suspect]
     Dosage: 5 MG,
     Route: 042
  2. ALENDRONATE [Suspect]
     Dosage: 70.0 MG , 1 TAB EVERY 1WEEKS
     Route: 048
  3. CALCIUM [Concomitant]
     Route: 065
  4. CHOLECALCIFEROL [Concomitant]
     Route: 065

REACTIONS (10)
  - Bursitis [Unknown]
  - Fall [Unknown]
  - Femur fracture [Unknown]
  - Hyperphosphataemia [Unknown]
  - Hypophosphatasia [Unknown]
  - Joint injury [Unknown]
  - Radius fracture [Unknown]
  - Stress fracture [Unknown]
  - Ulna fracture [Unknown]
  - Wrist fracture [Unknown]
